FAERS Safety Report 21949035 (Version 1)
Quarter: 2023Q1

REPORT INFORMATION
  Report Type: Other
  Country: None (occurrence: LB)
  Receive Date: 20230203
  Receipt Date: 20230203
  Transmission Date: 20230418
  Serious: Yes (Other)
  Sender: FDA-Public Use
  Company Number: LB-Ascent Pharmaceuticals, Inc.-2137459

PATIENT
  Age: 87 Year
  Sex: Female
  Weight: 82 kg

DRUGS (4)
  1. LISINOPRIL [Suspect]
     Active Substance: LISINOPRIL
     Indication: Blood pressure management
     Route: 065
  2. HYDROCHLOROTHIAZIDE\LISINOPRIL [Suspect]
     Active Substance: HYDROCHLOROTHIAZIDE\LISINOPRIL
     Route: 065
  3. LEVOTHYROXINE [Concomitant]
     Active Substance: LEVOTHYROXINE
     Route: 065
  4. Vildagliptin-Glyburide-Metformin [Concomitant]
     Route: 065

REACTIONS (1)
  - Pemphigoid [Recovered/Resolved]
